FAERS Safety Report 12204941 (Version 1)
Quarter: 2016Q1

REPORT INFORMATION
  Report Type: Spontaneous
  Country: US (occurrence: US)
  Receive Date: 20160323
  Receipt Date: 20160323
  Transmission Date: 20160526
  Serious: No
  Sender: FDA-Public Use
  Company Number: US-MYLANLABS-2015M1042289

PATIENT
  Age: 75 Year
  Sex: Male

DRUGS (1)
  1. CHLORTALIDONE [Suspect]
     Active Substance: CHLORTHALIDONE
     Dosage: UNK

REACTIONS (1)
  - Dysphonia [Unknown]
